FAERS Safety Report 6695445-3 (Version None)
Quarter: 2010Q2

REPORT INFORMATION
  Report Type: 
  Country: None (occurrence: None)
  Receive Date: 20100422
  Receipt Date: 20100422
  Transmission Date: 20101027
  Serious: No
  Sender: FDA-Public Use
  Company Number: None

PATIENT
  Age: 53 Year
  Sex: Female
  Weight: 108.8633 kg

DRUGS (2)
  1. NDC 68040-606-16 LIMBREL 500 MG/50 [Suspect]
     Indication: ARTHRITIS
     Dosage: 500 MG/50 MG 1 CAP BID PO
     Route: 048
     Dates: start: 20100215, end: 20100308
  2. NDC 68040-606-16 LIMBREL 500 MG/50 [Suspect]
     Indication: ARTHRITIS
     Dosage: 500 MG/50 MG 1 CAP BID PO
     Route: 048
     Dates: start: 20100315, end: 20100407

REACTIONS (4)
  - ARTHRALGIA [None]
  - CHILLS [None]
  - DYSPNOEA [None]
  - PYREXIA [None]
